FAERS Safety Report 8983913 (Version 2)
Quarter: 2013Q1

REPORT INFORMATION
  Report Type: Spontaneous
  Country: US (occurrence: None)
  Receive Date: 20121212
  Receipt Date: 20130115
  Transmission Date: 20140127
  Serious: Yes (Hospitalization)
  Sender: FDA-Public Use
  Company Number: 2012120008

PATIENT
  Age: 50 Year
  Sex: Female

DRUGS (13)
  1. SOMA [Suspect]
  2. PERCOCET [Suspect]
  3. VALIUM [Suspect]
  4. ETOH [Suspect]
  5. CIMZIA [Concomitant]
  6. CELEXA (CITALOPRAM) [Concomitant]
  7. GEMFIBROZIL (GEMFIBROZIL) [Concomitant]
  8. WELLBUTRIN SR (BUPROPRION) [Concomitant]
  9. MESALAMINE (MESALAMINE) [Concomitant]
  10. CIPRO (CIPROFLOXACIN) [Concomitant]
  11. ACETAMINOPHEN (ACETAMINOPHEN) [Concomitant]
  12. AZATHIOPRINE (AZATHIOPRINE) [Concomitant]
  13. INFLIXIMAB (INFLIXIMAB) [Concomitant]

REACTIONS (1)
  - Toxicity to various agents [None]
